FAERS Safety Report 10586804 (Version 1)
Quarter: 2014Q4

REPORT INFORMATION
  Report Type: Spontaneous
  Country: US (occurrence: US)
  Receive Date: 20141117
  Receipt Date: 20141117
  Transmission Date: 20150529
  Serious: Yes (Death, Other)
  Sender: FDA-Public Use
  Company Number: US-GLAXOSMITHKLINE-US2014GSK019564

PATIENT
  Sex: Male
  Weight: 67.12 kg

DRUGS (7)
  1. VOTRIENT [Suspect]
     Active Substance: PAZOPANIB HYDROCHLORIDE
     Indication: RENAL CANCER
     Dosage: 800 MG, QD
     Route: 048
     Dates: start: 20140905
  2. TYLENOL [Concomitant]
     Active Substance: ACETAMINOPHEN
  3. TURMERIC [Concomitant]
     Active Substance: TURMERIC
  4. ALLEGRA ALLERGY [Concomitant]
     Active Substance: FEXOFENADINE HYDROCHLORIDE
  5. MILK THISTLE [Concomitant]
     Active Substance: MILK THISTLE
  6. ECOTRIN [Concomitant]
     Active Substance: ASPIRIN
  7. MULTIVITAMINS [Concomitant]
     Active Substance: VITAMINS

REACTIONS (1)
  - Death [Fatal]
